FAERS Safety Report 5064425-6 (Version None)
Quarter: 2006Q3

REPORT INFORMATION
  Report Type: 
  Country: None (occurrence: None)
  Receive Date: 20060728
  Receipt Date: 20060718
  Transmission Date: 20061208
  Serious: Yes (Life-Threatening, Hospitalization, Other)
  Sender: FDA-Public Use
  Company Number: GB-BRISTOL-MYERS SQUIBB COMPANY-13455167

PATIENT
  Age: 77 Year
  Sex: Female

DRUGS (2)
  1. METFORMIN HYDROCHLORIDE [Suspect]
     Indication: DIABETES MELLITUS NON-INSULIN-DEPENDENT
  2. IODINE [Suspect]
     Indication: X-RAY
     Route: 042

REACTIONS (6)
  - DIARRHOEA [None]
  - HYPOTENSION [None]
  - LACTIC ACIDOSIS [None]
  - MALAISE [None]
  - RENAL FAILURE ACUTE [None]
  - VOMITING [None]
